FAERS Safety Report 6785588-8 (Version None)
Quarter: 2010Q2

REPORT INFORMATION
  Report Type: 
  Country: None (occurrence: None)
  Receive Date: 20100623
  Receipt Date: 20100217
  Transmission Date: 20101027
  Serious: Yes (Other)
  Sender: FDA-Public Use
  Company Number: US-ASTRAZENECA-2008UW18968

PATIENT
  Age: 18919 Day
  Sex: Female
  Weight: 78.9 kg

DRUGS (31)
  1. SEROQUEL [Suspect]
     Indication: BIPOLAR DISORDER
     Dosage: 100-300MG
     Route: 048
     Dates: start: 20030318, end: 20050501
  2. SEROQUEL [Suspect]
     Indication: PARANOIA
     Dosage: 100-300MG
     Route: 048
     Dates: start: 20030318, end: 20050501
  3. SEROQUEL [Suspect]
     Dosage: 150-300MG
     Route: 048
     Dates: start: 20050701, end: 20061101
  4. SEROQUEL [Suspect]
     Dosage: 150-300MG
     Route: 048
     Dates: start: 20050701, end: 20061101
  5. SEROQUEL [Suspect]
     Dosage: 100-300MG
     Route: 048
     Dates: start: 20061101, end: 20071001
  6. SEROQUEL [Suspect]
     Dosage: 100-300MG
     Route: 048
     Dates: start: 20061101, end: 20071001
  7. SEROQUEL [Suspect]
     Dosage: 100 MG ONE AND HALF DAILY AT NIGHT
     Route: 048
     Dates: start: 20071001, end: 20071201
  8. SEROQUEL [Suspect]
     Dosage: 100 MG ONE AND HALF DAILY AT NIGHT
     Route: 048
     Dates: start: 20071001, end: 20071201
  9. SEROQUEL [Suspect]
     Dosage: 100-300MG
     Route: 048
     Dates: start: 20080101, end: 20080401
  10. SEROQUEL [Suspect]
     Dosage: 100-300MG
     Route: 048
     Dates: start: 20080101, end: 20080401
  11. SEROQUEL [Suspect]
     Route: 048
     Dates: start: 20080318
  12. SEROQUEL [Suspect]
     Route: 048
     Dates: start: 20080318
  13. GEODON [Concomitant]
     Dates: start: 20080501
  14. NAVANE [Concomitant]
     Indication: PARANOIA
     Dates: start: 20080301, end: 20080601
  15. NAVANE [Concomitant]
     Dosage: 2 MG 1 QAM 1 QHS
     Route: 048
     Dates: start: 20080318
  16. RISPERDAL [Concomitant]
     Dates: start: 20050401, end: 20060101
  17. RISPERDAL [Concomitant]
     Dates: start: 20070301, end: 20070401
  18. ZYPREXA [Concomitant]
     Route: 048
     Dates: start: 20030201, end: 20031001
  19. DEPAKOTE [Concomitant]
  20. EFFEXOR/EFFEXOR-XR [Concomitant]
     Route: 048
     Dates: start: 20030318
  21. HALDOL [Concomitant]
     Dates: start: 20061201, end: 20070101
  22. BENZTROPINE MESYLATE [Concomitant]
     Dates: start: 20070101
  23. CITALOPRAM [Concomitant]
     Indication: DEPRESSION
     Dates: start: 20050701, end: 20070101
  24. CITALOPRAM [Concomitant]
     Dates: start: 20071120
  25. LEXAPRO [Concomitant]
     Dates: start: 20031201, end: 20050301
  26. LITHIUM [Concomitant]
     Dates: start: 20050501, end: 20060801
  27. TEGRETOL [Concomitant]
     Dates: start: 20050501, end: 20060801
  28. CYMBALTA [Concomitant]
     Dates: start: 20050501, end: 20051101
  29. TRAZODONE HYDROCHLORIDE [Concomitant]
     Indication: INSOMNIA
     Dates: start: 20080318
  30. RESTORIL [Concomitant]
     Route: 048
     Dates: start: 20030423
  31. NEURONTIN [Concomitant]
     Route: 048
     Dates: start: 20030318

REACTIONS (7)
  - AMNESIA [None]
  - BALANCE DISORDER [None]
  - BLOOD CHOLESTEROL INCREASED [None]
  - DEBRIDEMENT [None]
  - DIABETES MELLITUS [None]
  - FOOT FRACTURE [None]
  - OVERDOSE [None]
